FAERS Safety Report 23062938 (Version 1)
Quarter: 2023Q4

REPORT INFORMATION
  Report Type: Spontaneous
  Country: US (occurrence: None)
  Receive Date: 20231012
  Receipt Date: 20231012
  Transmission Date: 20240110
  Serious: Yes (Hospitalization)
  Sender: FDA-Public Use
  Company Number: None

PATIENT
  Sex: Female

DRUGS (1)
  1. EVEROLIMUS [Suspect]
     Active Substance: EVEROLIMUS
     Indication: Endometrial cancer
     Dosage: FREQUENCY : DAILY;?
     Route: 048
     Dates: start: 202306

REACTIONS (6)
  - Swelling face [None]
  - Dizziness [None]
  - Fatigue [None]
  - Asthenia [None]
  - Malignant neoplasm of eye [None]
  - Brain neoplasm malignant [None]

NARRATIVE: CASE EVENT DATE: 20230919
